FAERS Safety Report 19196019 (Version 4)
Quarter: 2021Q2

REPORT INFORMATION
  Report Type: Spontaneous
  Country: JP (occurrence: JP)
  Receive Date: 20210429
  Receipt Date: 20210617
  Transmission Date: 20210717
  Serious: Yes (Other)
  Sender: FDA-Public Use
  Company Number: JP-OTSUKA-2021_014122

PATIENT
  Age: 80 Year
  Sex: Female

DRUGS (1)
  1. REXULTI [Suspect]
     Active Substance: BREXPIPRAZOLE
     Indication: DEMENTIA
     Dosage: 1 MG, QD
     Route: 048
     Dates: start: 20200625, end: 20200729

REACTIONS (2)
  - Somnolence [Unknown]
  - Eating disorder [Unknown]

NARRATIVE: CASE EVENT DATE: 20200730
